FAERS Safety Report 9061511 (Version 1)
Quarter: 2013Q1

REPORT INFORMATION
  Report Type: Report from Study
  Country: JP (occurrence: JP)
  Receive Date: 20130204
  Receipt Date: 20130204
  Transmission Date: 20140127
  Serious: Yes (Other)
  Sender: FDA-Public Use
  Company Number: JP-VERTEX PHARMACEUTICALS INC.-2013-001445

PATIENT
  Age: 68 Year
  Sex: Female

DRUGS (6)
  1. VX-950 (TELAPREVIR) [Suspect]
     Indication: CHRONIC HEPATITIS C
     Dosage: 1500 MG, QD
     Route: 048
     Dates: start: 20120807, end: 20121029
  2. PEGINTERFERON ALFA-2B [Suspect]
     Indication: CHRONIC HEPATITIS C
     Dosage: 80 ?G, WEEK
     Route: 058
     Dates: start: 20120807, end: 20121112
  3. PEGINTERFERON ALFA-2B [Suspect]
     Dosage: 60 ?G, WEEK
     Route: 058
     Dates: start: 20121113, end: 20121119
  4. PEGINTERFERON ALFA-2B [Suspect]
     Dosage: 50 ?G, WEEK
     Route: 058
     Dates: start: 20121120, end: 20130115
  5. RIBAVIRIN [Concomitant]
     Dosage: 600 MG, QD
     Route: 048
     Dates: start: 20120807, end: 20121008
  6. RIBAVIRIN [Concomitant]
     Dosage: 400 MG, QD
     Route: 048
     Dates: start: 20121009, end: 20130121

REACTIONS (1)
  - Retinopathy [Recovered/Resolved]
